FAERS Safety Report 8458784-1 (Version None)
Quarter: 2012Q2

REPORT INFORMATION
  Report Type: 
  Country: None (occurrence: None)
  Receive Date: 20120622
  Receipt Date: 20120620
  Transmission Date: 20120825
  Serious: No
  Sender: FDA-Public Use
  Company Number: US-PFIZER INC-2012149002

PATIENT
  Sex: Female
  Weight: 49.887 kg

DRUGS (5)
  1. CELEBREX [Suspect]
     Indication: SPINAL DISORDER
  2. CELEBREX [Suspect]
     Indication: ARTHRITIS
     Dosage: 200 MG, 2X/DAY
     Route: 048
     Dates: start: 20111001
  3. SKELAXIN [Concomitant]
     Dosage: UNK
  4. TRAMADOL [Concomitant]
     Dosage: UNK
  5. CELEBREX [Suspect]
     Indication: SCOLIOSIS

REACTIONS (3)
  - ABDOMINAL DISCOMFORT [None]
  - NAUSEA [None]
  - PAIN [None]
